FAERS Safety Report 25849661 (Version 2)
Quarter: 2025Q3

REPORT INFORMATION
  Report Type: Spontaneous
  Country: JP (occurrence: JP)
  Receive Date: 20250926
  Receipt Date: 20250929
  Transmission Date: 20251021
  Serious: Yes (Hospitalization, Other)
  Sender: BRISTOL-MYERS SQUIBB COMPANY
  Company Number: JP-BRISTOL-MYERS SQUIBB COMPANY-BMS-2020-086004

PATIENT
  Age: 8 Decade
  Sex: Female
  Weight: 35.7 kg

DRUGS (2)
  1. NIVOLUMAB [Suspect]
     Active Substance: NIVOLUMAB
     Indication: Gastric cancer
     Dosage: TOTAL NUMBER OF ADMINISTRATIONS: 23
     Dates: start: 20190417, end: 20200318
  2. UNSPECIFIED INGREDIENT [Concomitant]
     Active Substance: UNSPECIFIED INGREDIENT
     Indication: Hypertension

REACTIONS (4)
  - Amylase increased [Unknown]
  - Herpes zoster [Recovered/Resolved]
  - Thyroid disorder [Unknown]
  - Immune-mediated uveitis [Recovering/Resolving]

NARRATIVE: CASE EVENT DATE: 20200301
